FAERS Safety Report 4530640-0 (Version None)
Quarter: 2004Q4

REPORT INFORMATION
  Report Type: 
  Country: None (occurrence: None)
  Receive Date: 20041217
  Receipt Date: 20030709
  Transmission Date: 20050328
  Serious: Yes (Other)
  Sender: FDA-Public Use
  Company Number: CA-ABBOTT-03P-028-0224185-00

PATIENT
  Sex: Female
  Weight: 88 kg

DRUGS (16)
  1. HUMIRA [Suspect]
     Indication: RHEUMATOID ARTHRITIS
     Route: 058
     Dates: start: 20001011, end: 20030603
  2. LEVOTHYROXINE SODIUM [Concomitant]
     Indication: HYPOTHYROIDISM
     Route: 048
     Dates: start: 19910101
  3. FOLIC ACID [Concomitant]
     Indication: VITAMIN SUPPLEMENTATION
     Route: 048
     Dates: start: 19981209
  4. CELECOXIB [Concomitant]
     Indication: RHEUMATOID ARTHRITIS
     Route: 048
     Dates: start: 20010904
  5. PANTOPRAZOLE [Concomitant]
     Indication: DYSPEPSIA
     Route: 048
     Dates: start: 20010911
  6. FLUTICASONE PROPIONATE [Concomitant]
     Indication: ASTHMA
     Route: 048
     Dates: start: 20011114
  7. COMBIVENT [Concomitant]
     Indication: ASTHMA
     Route: 048
     Dates: start: 20011101
  8. METOCLOPRAMIDE HYDROCHLORIDE [Concomitant]
     Indication: DYSPEPSIA
     Route: 048
     Dates: start: 20020301
  9. PAROXETINE HYDROCHLORIDE [Concomitant]
     Indication: ANXIETY
     Route: 048
     Dates: start: 20020111
  10. CALCIUM WITH VITAMIN D [Concomitant]
     Indication: MINERAL SUPPLEMENTATION
     Route: 048
     Dates: start: 20021010, end: 20021101
  11. MULTI-VITAMINS [Concomitant]
     Indication: VITAMIN SUPPLEMENTATION
     Route: 048
     Dates: start: 19870101
  12. CONJUGATED ESTROGEN [Concomitant]
     Indication: HORMONE REPLACEMENT THERAPY
     Route: 048
     Dates: start: 20020801, end: 20021101
  13. CLARITHROMYCIN [Concomitant]
     Indication: URINARY TRACT INFECTION
     Route: 048
     Dates: start: 20021210, end: 20021215
  14. AMOXICILLIN [Concomitant]
     Indication: URINARY TRACT INFECTION
     Route: 048
     Dates: start: 20021223, end: 20021228
  15. AMOXICILLIN [Concomitant]
     Route: 048
     Dates: start: 20030117, end: 20030128
  16. SOLPADEINE [Concomitant]
     Indication: CONTUSION
     Route: 048
     Dates: start: 20030104, end: 20030110

REACTIONS (1)
  - PYODERMA GANGRENOSUM [None]
